FAERS Safety Report 6451469-2 (Version None)
Quarter: 2009Q4

REPORT INFORMATION
  Report Type: 
  Country: None (occurrence: None)
  Receive Date: 20091123
  Receipt Date: 20090330
  Transmission Date: 20100525
  Serious: No
  Sender: FDA-Public Use
  Company Number: US-BRISTOL-MYERS SQUIBB COMPANY-14568745

PATIENT
  Sex: Female

DRUGS (1)
  1. AVALIDE [Suspect]

REACTIONS (2)
  - MIGRAINE WITH AURA [None]
  - VISION BLURRED [None]
